FAERS Safety Report 5299350-9 (Version None)
Quarter: 2007Q2

REPORT INFORMATION
  Report Type: 
  Country: None (occurrence: None)
  Receive Date: 20070411
  Receipt Date: 20070411
  Transmission Date: 20071010
  Serious: Yes (Hospitalization)
  Sender: FDA-Public Use
  Company Number: None

PATIENT
  Age: 52 Year
  Sex: Male

DRUGS (8)
  1. GLIPIZIDE [Suspect]
     Indication: DIABETES MELLITUS
     Dosage: PO
     Route: 048
  2. DILTIAZEM [Suspect]
     Dosage: PO
     Route: 048
  3. LABETALOL HCL [Suspect]
  4. IRON [Concomitant]
  5. LASIX [Concomitant]
  6. IMDUR [Concomitant]
  7. NORVASC [Concomitant]
  8. INSULIN [Concomitant]

REACTIONS (4)
  - BLOOD GLUCOSE DECREASED [None]
  - HEART RATE DECREASED [None]
  - IATROGENIC INJURY [None]
  - LOSS OF CONSCIOUSNESS [None]
